FAERS Safety Report 15622044 (Version 1)
Quarter: 2018Q4

REPORT INFORMATION
  Report Type: Spontaneous
  Country: US (occurrence: US)
  Receive Date: 20181115
  Receipt Date: 20181115
  Transmission Date: 20190205
  Serious: No
  Sender: FDA-Public Use
  Company Number: US-PFIZER INC-2018463882

PATIENT
  Age: 12 Year
  Sex: Male

DRUGS (3)
  1. EUCRISA [Suspect]
     Active Substance: CRISABOROLE
     Indication: SKIN BACTERIAL INFECTION
  2. EUCRISA [Suspect]
     Active Substance: CRISABOROLE
     Indication: FUNGAL SKIN INFECTION
  3. EUCRISA [Suspect]
     Active Substance: CRISABOROLE
     Indication: DERMATITIS
     Dosage: UNK

REACTIONS (1)
  - Application site pain [Unknown]
